FAERS Safety Report 15009075 (Version 1)
Quarter: 2018Q2

REPORT INFORMATION
  Report Type: Spontaneous
  Country: US (occurrence: US)
  Receive Date: 20180614
  Receipt Date: 20180614
  Transmission Date: 20180711
  Serious: Yes (Death)
  Sender: FDA-Public Use
  Company Number: US-EDENBRIDGE PHARMACEUTICALS, LLC-US-2018EDE000174

PATIENT
  Age: 73 Year
  Sex: Female

DRUGS (7)
  1. VINCRISTINE [Suspect]
     Active Substance: VINCRISTINE
     Indication: DOUBLE HIT LYMPHOMA
     Dosage: UNK, 1 CYCLE
  2. DOXORUBICIN [Suspect]
     Active Substance: DOXORUBICIN
     Indication: DOUBLE HIT LYMPHOMA
     Dosage: UNK, 1 CYCLE
  3. METHOTREXATE. [Suspect]
     Active Substance: METHOTREXATE
     Indication: PROPHYLAXIS
     Dosage: UNK
     Route: 037
  4. ETOPOSIDE. [Suspect]
     Active Substance: ETOPOSIDE
     Indication: DOUBLE HIT LYMPHOMA
     Dosage: UNK, 1 CYCLE
  5. PREDNISOLONE SODIUM PHOSPHATE. [Suspect]
     Active Substance: PREDNISOLONE SODIUM PHOSPHATE
     Indication: DOUBLE HIT LYMPHOMA
     Dosage: UNK, 1 CYCLE
  6. CYCLOPHOSPHAMIDE. [Suspect]
     Active Substance: CYCLOPHOSPHAMIDE
     Indication: DOUBLE HIT LYMPHOMA
     Dosage: UNK, 1 CYCLE
  7. RITUXIMAB. [Suspect]
     Active Substance: RITUXIMAB
     Indication: DOUBLE HIT LYMPHOMA
     Dosage: UNK, 1 CYCLE

REACTIONS (1)
  - Enterococcal bacteraemia [Fatal]
